FAERS Safety Report 10981129 (Version 2)
Quarter: 2015Q2

REPORT INFORMATION
  Report Type: Spontaneous
  Country: US (occurrence: US)
  Receive Date: 20150402
  Receipt Date: 20150525
  Transmission Date: 20150821
  Serious: No
  Sender: FDA-Public Use
  Company Number: US-JNJFOC-20140605643

PATIENT
  Sex: Female
  Weight: 67.59 kg

DRUGS (6)
  1. DILTIAZEM [Concomitant]
     Active Substance: DILTIAZEM
     Indication: CARDIAC DISORDER
     Dosage: 240 ONCE DAILY IN 8 MONTHS
     Route: 065
  2. IMODIUM MULTI-SYMPTOM RELIEF [Suspect]
     Active Substance: DIMETHICONE\LOPERAMIDE HYDROCHLORIDE
     Indication: DIARRHOEA
     Dosage: HALF A TABLET NOT MORE THAN ONE IN A DAY
     Route: 048
  3. PANTOPRAZOLE [Concomitant]
     Active Substance: PANTOPRAZOLE SODIUM
     Indication: GASTRIC DISORDER
     Dosage: FOR 3 YEARS
     Route: 065
  4. CRESTOR [Concomitant]
     Active Substance: ROSUVASTATIN CALCIUM
     Indication: BLOOD CHOLESTEROL INCREASED
     Dosage: 6 MONTHS
     Route: 065
  5. LOSARTAN [Concomitant]
     Active Substance: LOSARTAN
     Indication: CARDIAC DISORDER
     Dosage: 2 YEARS
     Route: 065
  6. IMODIUM MULTI-SYMPTOM RELIEF [Suspect]
     Active Substance: DIMETHICONE\LOPERAMIDE HYDROCHLORIDE
     Route: 048

REACTIONS (3)
  - Retching [Recovered/Resolved]
  - Choking [Recovered/Resolved]
  - Dysphagia [Recovered/Resolved]
